FAERS Safety Report 7692575 (Version 4)
Quarter: 2014Q2

REPORT INFORMATION
  Report Type: Spontaneous
  Country: US (occurrence: US)
  Receive Date: 20101206
  Receipt Date: 20140416
  Transmission Date: 20141212
  Serious: Yes (Hospitalization, Other)
  Sender: FDA-Public Use
  Company Number: US-BAYER-2010-001150

PATIENT
  Age: 23 Year
  Sex: Female
  Weight: 68.03 kg

DRUGS (1)
  1. YASMIN [Suspect]
     Indication: PREMENSTRUAL SYNDROME
     Dosage: UNK
     Route: 048
     Dates: start: 2006, end: 2008

REACTIONS (3)
  - Cholelithiasis [None]
  - Cholelithiasis [None]
  - Cholecystitis acute [None]
